FAERS Safety Report 20779008 (Version 1)
Quarter: 2022Q2

REPORT INFORMATION
  Report Type: Spontaneous
  Country: US (occurrence: US)
  Receive Date: 20220503
  Receipt Date: 20220503
  Transmission Date: 20220721
  Serious: No
  Sender: FDA-Public Use
  Company Number: US-PFIZER INC-2019024533

PATIENT
  Age: 77 Year
  Sex: Female
  Weight: 58.97 kg

DRUGS (4)
  1. PREMARIN [Suspect]
     Active Substance: ESTROGENS, CONJUGATED
     Indication: Hormone replacement therapy
     Dosage: 1.25 MG, DAILY (QUANTITY FOR 90 DAYS:90)
  2. PREMARIN [Suspect]
     Active Substance: ESTROGENS, CONJUGATED
     Dosage: 0.625 MG, 1X/DAY
     Dates: start: 2000
  3. PREMARIN [Suspect]
     Active Substance: ESTROGENS, CONJUGATED
     Dosage: 0.625 MG, ALTERNATE DAY
  4. TRIAMCINOLONE ACETONIDE [Concomitant]
     Active Substance: TRIAMCINOLONE ACETONIDE
     Indication: Vulvovaginal dryness
     Dosage: 1 G, AS NEEDED (INSERTED VAGINALLY ALTERNATELY WITH THE PREMARIN VAGINAL CREAM)
     Route: 067

REACTIONS (9)
  - Dry skin [Unknown]
  - Depression [Unknown]
  - Anxiety [Unknown]
  - Irritability [Unknown]
  - Insomnia [Unknown]
  - Vulvovaginal dryness [Unknown]
  - Euphoric mood [Unknown]
  - Cardiac disorder [Unknown]
  - Intentional product misuse [Unknown]

NARRATIVE: CASE EVENT DATE: 20220101
